FAERS Safety Report 15308918 (Version 6)
Quarter: 2018Q4

REPORT INFORMATION
  Report Type: Spontaneous
  Country: DE (occurrence: DE)
  Receive Date: 20180823
  Receipt Date: 20181123
  Transmission Date: 20190204
  Serious: Yes (Hospitalization)
  Sender: FDA-Public Use
  Company Number: DE-BEH-2018094016

PATIENT
  Age: 79 Year
  Sex: Male

DRUGS (3)
  1. BERIPLEX P/N [Suspect]
     Active Substance: COAGULATION FACTOR IX HUMAN\COAGULATION FACTOR VII HUMAN\COAGULATION FACTOR X HUMAN\PROTEIN C\PROTEIN S HUMAN\PROTHROMBIN
     Indication: ENDOSCOPIC RETROGRADE CHOLANGIOPANCREATOGRAPHY
     Dosage: 1000 IU, UNK
     Route: 042
     Dates: start: 20180802
  2. BERIPLEX P/N [Suspect]
     Active Substance: COAGULATION FACTOR IX HUMAN\COAGULATION FACTOR VII HUMAN\COAGULATION FACTOR X HUMAN\PROTEIN C\PROTEIN S HUMAN\PROTHROMBIN
     Dosage: 3000 IU, UNK
     Route: 042
     Dates: start: 20180802
  3. BERIPLEX P/N [Suspect]
     Active Substance: COAGULATION FACTOR IX HUMAN\COAGULATION FACTOR VII HUMAN\COAGULATION FACTOR X HUMAN\PROTEIN C\PROTEIN S HUMAN\PROTHROMBIN
     Dosage: 3000 IU, UNK
     Route: 042
     Dates: start: 20180802

REACTIONS (4)
  - Hypertensive crisis [Unknown]
  - Dyspnoea [Unknown]
  - Hyperventilation [Unknown]
  - Tachycardia [Unknown]

NARRATIVE: CASE EVENT DATE: 20180802
